FAERS Safety Report 24978295 (Version 3)
Quarter: 2025Q1

REPORT INFORMATION
  Report Type: Spontaneous
  Country: JP (occurrence: JP)
  Receive Date: 20250217
  Receipt Date: 20250328
  Transmission Date: 20250409
  Serious: Yes (Life-Threatening, Other)
  Sender: GLAXOSMITHKLINE
  Company Number: JP-GLAXOSMITHKLINE INC-JP2025018967

PATIENT

DRUGS (11)
  1. NUCALA [Suspect]
     Active Substance: MEPOLIZUMAB
     Indication: Eosinophilic granulomatosis with polyangiitis
     Dosage: 300 MG, Q4W
     Route: 058
     Dates: start: 20241212, end: 20250206
  2. PREDNISOLONE [Suspect]
     Active Substance: PREDNISOLONE
     Dosage: 10 MG, BID, AFTER BREAKFAST AND LUNCH
  3. NEXIUM [Concomitant]
     Active Substance: ESOMEPRAZOLE MAGNESIUM
     Dosage: 20 MG, 1D, AFTER BREAKFAST
  4. BISOPROLOL FUMARATE [Concomitant]
     Active Substance: BISOPROLOL FUMARATE
     Dosage: 2.5 MG, 1D, AFTER BREAKFAST
  5. SULFAMETHOXAZOLE\TRIMETHOPRIM [Concomitant]
     Active Substance: SULFAMETHOXAZOLE\TRIMETHOPRIM
     Dosage: 1 DF, 1D, AFTER BREAKFAST
  6. ELIQUIS [Concomitant]
     Active Substance: APIXABAN
     Dosage: 2.5 MG, BID, AFTER BREAKFAST AND DINNER
  7. ALENDRONATE [Concomitant]
     Active Substance: ALENDRONATE SODIUM
     Dosage: 35 MG, WE, ON AWAKENING, FRIDAY
  8. AMITIZA [Concomitant]
     Active Substance: LUBIPROSTONE
     Dosage: 24 ?G, 1D, AFTER BREAKFAST
  9. FUNGIZONE [Concomitant]
     Active Substance: AMPHOTERICIN B
     Dosage: 10 ML, QID, AFTER EACH MEALS AND BEFORE BED
  10. ENALAPRIL MALEATE [Concomitant]
     Active Substance: ENALAPRIL MALEATE
     Dosage: 2.5 MG, 1D, AFTER BREAKFAST
  11. CRESEMBA [Concomitant]
     Active Substance: ISAVUCONAZONIUM SULFATE
     Dosage: 200 MG, 1D, AFTER DINNER

REACTIONS (10)
  - Cholecystitis [Recovered/Resolved]
  - Acute kidney injury [Recovered/Resolved]
  - Hypovolaemic shock [Recovered/Resolved]
  - Sepsis [Unknown]
  - Pneumothorax [Unknown]
  - Malnutrition [Unknown]
  - Back pain [Unknown]
  - Decreased appetite [Unknown]
  - Nausea [Unknown]
  - Costovertebral angle tenderness [Unknown]

NARRATIVE: CASE EVENT DATE: 20250211
